FAERS Safety Report 8564594 (Version 2)
Quarter: 2014Q1

REPORT INFORMATION
  Report Type: Report from Study
  Country: US (occurrence: US)
  Receive Date: 20120516
  Receipt Date: 20140108
  Transmission Date: 20141002
  Serious: Yes (Hospitalization)
  Sender: FDA-Public Use
  Company Number: US-ALEXION-A201101731

PATIENT
  Age: 3 Month
  Sex: Male

DRUGS (18)
  1. SOLIRIS [Suspect]
     Indication: DIFFUSE MESANGIAL SCLEROSIS
     Dosage: 300 MG, Q 3 WEEKS
     Route: 042
     Dates: start: 20111007, end: 20111125
  2. SOLIRIS [Suspect]
     Indication: OFF LABEL USE
  3. ANTIHYPERTENSIVES [Concomitant]
     Dosage: UNK
  4. VITAMIN D [Concomitant]
     Dosage: UNK
  5. IRON [Concomitant]
     Dosage: UNK
  6. EPOGEN [Concomitant]
     Dosage: UNK
  7. VASOTEC [Concomitant]
     Dosage: UNK
  8. HYDRALAZINE [Concomitant]
     Dosage: UNK
  9. ANTIBIOTICS [Concomitant]
     Dosage: UNK
  10. SYNTHROID [Concomitant]
     Dosage: UNK
  11. FENTANYL [Concomitant]
     Dosage: UNK
  12. VISTARIL [Concomitant]
     Dosage: UNK
  13. ELECTROLYTE [Concomitant]
     Dosage: UNK
  14. PNEUMOCOCCAL VACCINE [Concomitant]
     Dosage: UNK
     Dates: start: 20111108, end: 20111108
  15. PNEUMOCOCCAL VACCINE [Concomitant]
     Dosage: UNK
     Dates: start: 20120130, end: 20120130
  16. HEMOPHILUS VACCINE [Concomitant]
     Dosage: UNK
     Dates: start: 20111108, end: 20111108
  17. HEMOPHILUS VACCINE [Concomitant]
     Dosage: UNK
     Dates: start: 20120130, end: 20120130
  18. PENICILLIN [Concomitant]
     Indication: PROPHYLAXIS

REACTIONS (4)
  - Renal failure [Not Recovered/Not Resolved]
  - Surgery [Recovered/Resolved]
  - Motor dysfunction [Not Recovered/Not Resolved]
  - Off label use [Unknown]
